FAERS Safety Report 4449165-6 (Version None)
Quarter: 2004Q3

REPORT INFORMATION
  Report Type: 
  Country: None (occurrence: None)
  Receive Date: 20040913
  Receipt Date: 20040826
  Transmission Date: 20050211
  Serious: No
  Sender: FDA-Public Use
  Company Number: 04P-163-0262701-00

PATIENT
  Age: 50 Year
  Sex: Male

DRUGS (4)
  1. CYCLOSPORINE (GENGRAF) (CYCLOSPORINE) [Suspect]
     Indication: HEART TRANSPLANT
  2. PREDNISONE [Concomitant]
  3. MYCOPHENOLATE MOFETIL [Concomitant]
  4. AZATHIOPRINE [Concomitant]

REACTIONS (2)
  - DRUG TOXICITY [None]
  - GRAND MAL CONVULSION [None]
